FAERS Safety Report 15160440 (Version 2)
Quarter: 2018Q4

REPORT INFORMATION
  Report Type: Report from Study
  Country: US (occurrence: US)
  Receive Date: 20180718
  Receipt Date: 20181109
  Transmission Date: 20190204
  Serious: Yes (Hospitalization)
  Sender: FDA-Public Use
  Company Number: US-ACTELION-A-US2017-161500

PATIENT
  Age: 43 Year
  Sex: Male

DRUGS (1)
  1. OPSUMIT [Suspect]
     Active Substance: MACITENTAN
     Indication: PULMONARY ARTERIAL HYPERTENSION
     Dosage: 10 MG, QD
     Route: 048
     Dates: start: 20170119

REACTIONS (7)
  - Hospitalisation [Unknown]
  - Malaise [Unknown]
  - Product dose omission [Unknown]
  - Vitamin B12 decreased [Unknown]
  - Gout [Not Recovered/Not Resolved]
  - Vitamin D decreased [Unknown]
  - Headache [Unknown]

NARRATIVE: CASE EVENT DATE: 201710
